FAERS Safety Report 4583920-7 (Version None)
Quarter: 2005Q1

REPORT INFORMATION
  Report Type: 
  Country: None (occurrence: None)
  Receive Date: 20050216
  Receipt Date: 20041122
  Transmission Date: 20050727
  Serious: No
  Sender: FDA-Public Use
  Company Number: US-GLAXOSMITHKLINE-A0534842A

PATIENT
  Sex: Male

DRUGS (4)
  1. AVODART [Suspect]
     Indication: BENIGN PROSTATIC HYPERPLASIA
     Dosage: .5MG PER DAY
     Route: 048
  2. MULTIVITAMIN [Concomitant]
  3. ASPIRIN [Concomitant]
  4. FLONASE [Concomitant]

REACTIONS (3)
  - DYSURIA [None]
  - POLLAKIURIA [None]
  - PROSTATITIS [None]
